FAERS Safety Report 18174421 (Version 1)
Quarter: 2020Q3

REPORT INFORMATION
  Report Type: Spontaneous
  Country: US (occurrence: US)
  Receive Date: 20200820
  Receipt Date: 20200820
  Transmission Date: 20201103
  Serious: No
  Sender: FDA-Public Use
  Company Number: None

PATIENT
  Age: 82 Year
  Sex: Male
  Weight: 99 kg

DRUGS (11)
  1. SPRYCEL [Suspect]
     Active Substance: DASATINIB
     Indication: CHRONIC MYELOID LEUKAEMIA
     Route: 048
     Dates: start: 20200219, end: 20200820
  2. ATORVASTATIN 80MG [Concomitant]
     Active Substance: ATORVASTATIN
  3. LOSARTAN 50MG [Concomitant]
     Active Substance: LOSARTAN
  4. FINASTERIDE 5MG [Concomitant]
     Active Substance: FINASTERIDE
  5. PREDNISONE 5MG [Concomitant]
     Active Substance: PREDNISONE
  6. SULFASALAZINE 500MG [Concomitant]
     Active Substance: SULFASALAZINE
  7. FOLIC ACID 1MG [Concomitant]
     Active Substance: FOLIC ACID
  8. ALLOPURINOL 150MG [Concomitant]
  9. VITAMIN B12 [Concomitant]
     Active Substance: CYANOCOBALAMIN
  10. NITROGLYCERIN 0.3MG [Concomitant]
  11. VITAMIN D [Concomitant]
     Active Substance: VITAMIN D NOS

REACTIONS (1)
  - Drug ineffective [None]

NARRATIVE: CASE EVENT DATE: 20200820
